FAERS Safety Report 7090913-7 (Version None)
Quarter: 2010Q4

REPORT INFORMATION
  Report Type: 
  Country: None (occurrence: None)
  Receive Date: 20101109
  Receipt Date: 20101027
  Transmission Date: 20110411
  Serious: Yes (Hospitalization)
  Sender: FDA-Public Use
  Company Number: US-ELI_LILLY_AND_COMPANY-US201010002100

PATIENT
  Sex: Female

DRUGS (6)
  1. FORTEO [Suspect]
     Indication: OSTEOPOROSIS
     Dosage: 20 UG, DAILY (1/D)
     Route: 058
     Dates: start: 20100801
  2. SYNTHROID [Concomitant]
  3. NEXIUM [Concomitant]
  4. EYE DROPS [Concomitant]
  5. LIPITOR [Concomitant]
     Dosage: 10 MG, EACH EVENING
  6. COUMADIN [Concomitant]

REACTIONS (7)
  - ARTHRALGIA [None]
  - BACK INJURY [None]
  - CHONDROCALCINOSIS PYROPHOSPHATE [None]
  - CONTUSION [None]
  - FALL [None]
  - PAIN [None]
  - PAIN IN EXTREMITY [None]
